FAERS Safety Report 22255519 (Version 1)
Quarter: 2023Q2

REPORT INFORMATION
  Report Type: Report from Study
  Country: AR (occurrence: AR)
  Receive Date: 20230426
  Receipt Date: 20230426
  Transmission Date: 20230721
  Serious: Yes (Other)
  Sender: FDA-Public Use
  Company Number: AR-002147023-NVSC2023AR091340

PATIENT
  Sex: Male

DRUGS (1)
  1. COSENTYX [Suspect]
     Active Substance: SECUKINUMAB
     Indication: Psoriasis
     Dosage: UNK
     Route: 065
     Dates: start: 20210827

REACTIONS (5)
  - Bronchiolitis [Unknown]
  - Ill-defined disorder [Unknown]
  - Panic attack [Unknown]
  - Stress [Unknown]
  - Hypertension [Unknown]
